FAERS Safety Report 6692360-6 (Version None)
Quarter: 2010Q2

REPORT INFORMATION
  Report Type: 
  Country: None (occurrence: None)
  Receive Date: 20100419
  Receipt Date: 20100331
  Transmission Date: 20101027
  Serious: Yes (Other)
  Sender: FDA-Public Use
  Company Number: GB-ACCORD-004638

PATIENT
  Age: 62 Year
  Sex: Female
  Weight: 71 kg

DRUGS (3)
  1. SIMVASTATIN [Suspect]
     Indication: HYPERCHOLESTEROLAEMIA
     Dosage: 40.00-MG/ORAL
     Route: 048
     Dates: start: 20091223, end: 20100311
  2. ACETAMINOPHEN [Concomitant]
  3. TOLTERODINE TARTRATE [Concomitant]

REACTIONS (1)
  - SKIN HYPERPIGMENTATION [None]
